FAERS Safety Report 9937396 (Version 2)
Quarter: 2014Q1

REPORT INFORMATION
  Report Type: Report from Study
  Country: DE (occurrence: DE)
  Receive Date: 20140303
  Receipt Date: 20140305
  Transmission Date: 20141002
  Serious: Yes (Death, Other)
  Sender: FDA-Public Use
  Company Number: DE-ROCHE-1358057

PATIENT
  Sex: Male

DRUGS (3)
  1. RANIBIZUMAB [Suspect]
     Indication: AGE-RELATED MACULAR DEGENERATION
     Route: 050
     Dates: start: 20101013
  2. RANIBIZUMAB [Suspect]
     Route: 050
     Dates: start: 20120710
  3. RANIBIZUMAB [Suspect]
     Route: 050
     Dates: start: 20120821

REACTIONS (7)
  - Multimorbidity [Fatal]
  - Cystoid macular oedema [Unknown]
  - Retinal cyst [Unknown]
  - Choroidal neovascularisation [Unknown]
  - Subretinal fluid [Unknown]
  - Visual acuity reduced [Unknown]
  - Metamorphopsia [Unknown]
